FAERS Safety Report 16972868 (Version 2)
Quarter: 2019Q4

REPORT INFORMATION
  Report Type: Spontaneous
  Country: US (occurrence: US)
  Receive Date: 20191030
  Receipt Date: 20191212
  Transmission Date: 20200122
  Serious: No
  Sender: FDA-Public Use
  Company Number: US-LUPIN PHARMACEUTICALS INC.-2018-07784

PATIENT
  Age: 18 Year
  Sex: Female

DRUGS (1)
  1. MIBELAS 24 FE [Suspect]
     Active Substance: ETHINYL ESTRADIOL\NORETHINDRONE ACETATE
     Dosage: UNK
     Route: 065
     Dates: start: 20181013

REACTIONS (3)
  - Nausea [Unknown]
  - Fatigue [Unknown]
  - Asthenia [Unknown]
